FAERS Safety Report 5481154-5 (Version None)
Quarter: 2007Q4

REPORT INFORMATION
  Report Type: 
  Country: None (occurrence: None)
  Receive Date: 20071004
  Receipt Date: 20070919
  Transmission Date: 20080405
  Serious: Yes (Other)
  Sender: FDA-Public Use
  Company Number: 018877

PATIENT
  Sex: Male

DRUGS (2)
  1. AZITHROMYCIN(AZITHROMYCIN) TABLET, 250MG [Suspect]
     Indication: DRUG EXPOSURE DURING PREGNANCY
     Dosage: 500 MG, SINGLE, AT 35 WEEKS OF, TRANSPLACENTAL; 250 MG, QD, AT 35 WEEKS OF GEST., TRANSPLACENTAL
     Route: 064
  2. AZITHROMYCIN(AZITHROMYCIN) TABLET, 250MG [Suspect]
     Indication: DRUG EXPOSURE DURING PREGNANCY
     Dosage: 500 MG, SINGLE, AT 35 WEEKS OF, TRANSPLACENTAL; 250 MG, QD, AT 35 WEEKS OF GEST., TRANSPLACENTAL
     Route: 064

REACTIONS (7)
  - CAESAREAN SECTION [None]
  - DRUG EXPOSURE DURING PREGNANCY [None]
  - GROUP B STREPTOCOCCUS NEONATAL SEPSIS [None]
  - GRUNTING [None]
  - NEONATAL DISORDER [None]
  - NEONATAL TACHYPNOEA [None]
  - PNEUMONIA STREPTOCOCCAL [None]
